FAERS Safety Report 4540963-7 (Version None)
Quarter: 2004Q4

REPORT INFORMATION
  Report Type: 
  Country: None (occurrence: None)
  Receive Date: 20041229
  Receipt Date: 20041220
  Transmission Date: 20050328
  Serious: Yes (Hospitalization)
  Sender: FDA-Public Use
  Company Number: US-JNJFOC-20041001376

PATIENT
  Sex: Female
  Weight: 137.89 kg

DRUGS (9)
  1. TOPAMAX [Suspect]
     Indication: WEIGHT LOSS DIET
     Route: 049
  2. METFORMIN HCL [Concomitant]
     Indication: INFERTILITY
  3. FLUOXETINE [Concomitant]
  4. LEVOTHYROXINE SODIUM [Concomitant]
     Indication: HYPOTHYROIDISM
  5. ACYCLOVIR [Concomitant]
  6. DYAZIDE [Concomitant]
  7. DYAZIDE [Concomitant]
     Dosage: 37.5/25 MG/DAY
  8. AMBIEN [Concomitant]
     Dosage: 5 MG, 1-2 AT NIGHT
  9. CLONAZEPAM [Concomitant]
     Dosage: 0.5-1.0 MG THREE TIMES/DAY

REACTIONS (8)
  - ACTIVITIES OF DAILY LIVING IMPAIRED [None]
  - ANXIETY [None]
  - CONFUSIONAL STATE [None]
  - DIZZINESS [None]
  - EATING DISORDER SYMPTOM [None]
  - HEADACHE [None]
  - NERVOUSNESS [None]
  - WHITE BLOOD CELL COUNT INCREASED [None]
